FAERS Safety Report 12807169 (Version 2)
Quarter: 2016Q4

REPORT INFORMATION
  Report Type: Report from Study
  Country: MX (occurrence: MX)
  Receive Date: 20161004
  Receipt Date: 20161010
  Transmission Date: 20170207
  Serious: Yes (Other)
  Sender: FDA-Public Use
  Company Number: MX-ELI_LILLY_AND_COMPANY-MX201609009170

PATIENT
  Age: 34 Year
  Sex: Female
  Weight: 82 kg

DRUGS (4)
  1. INSULIN, LISPRO [Suspect]
     Active Substance: INSULIN LISPRO
     Indication: TYPE 2 DIABETES MELLITUS
     Dosage: 24 U, QD
     Route: 058
     Dates: start: 20160910
  2. ASPIRIN                            /00002701/ [Concomitant]
     Active Substance: ASPIRIN
     Indication: PROPHYLAXIS
  3. FOLIC ACID. [Concomitant]
     Active Substance: FOLIC ACID
  4. METFORMIN [Concomitant]
     Active Substance: METFORMIN HYDROCHLORIDE
     Dosage: 1.5 DF, UNKNOWN
     Route: 065

REACTIONS (3)
  - Uterine haemorrhage [Recovered/Resolved]
  - Expired product administered [Unknown]
  - Maternal exposure during pregnancy [Not Recovered/Not Resolved]

NARRATIVE: CASE EVENT DATE: 20160910
